FAERS Safety Report 19870235 (Version 2)
Quarter: 2022Q2

REPORT INFORMATION
  Report Type: Spontaneous
  Country: JP (occurrence: JP)
  Receive Date: 20210922
  Receipt Date: 20220506
  Transmission Date: 20220721
  Serious: Yes (Hospitalization, Other)
  Sender: FDA-Public Use
  Company Number: JP-TAKEDA-2021TJP089456

PATIENT
  Age: 91 Year
  Sex: Male

DRUGS (1)
  1. LEUPLIN [Suspect]
     Active Substance: LEUPROLIDE ACETATE
     Indication: Prostate cancer
     Dosage: 22.5 MILLIGRAM, Q6MONTHS
     Route: 058

REACTIONS (4)
  - Femoral neck fracture [Recovering/Resolving]
  - Lumbar vertebral fracture [Recovering/Resolving]
  - Metastases to bone [Unknown]
  - Prostate cancer [Unknown]
